FAERS Safety Report 8430729-X (Version None)
Quarter: 2012Q2

REPORT INFORMATION
  Report Type: 
  Country: None (occurrence: None)
  Receive Date: 20120612
  Receipt Date: 20120607
  Transmission Date: 20120825
  Serious: No
  Sender: FDA-Public Use
  Company Number: US-ROXANE LABORATORIES, INC.-2012-RO-01178RO

PATIENT
  Age: 52 Year
  Sex: Female

DRUGS (2)
  1. QUETIAPINE FUMARATE [Suspect]
     Indication: SCHIZOAFFECTIVE DISORDER
     Dosage: 150 MG
     Route: 048
     Dates: start: 20120417
  2. LITHIUM [Concomitant]
     Indication: SCHIZOAFFECTIVE DISORDER

REACTIONS (10)
  - BLOOD PROLACTIN INCREASED [None]
  - FEELING JITTERY [None]
  - BREAST ENLARGEMENT [None]
  - BACK PAIN [None]
  - ABDOMINAL DISCOMFORT [None]
  - DRUG INEFFECTIVE [None]
  - ANXIETY [None]
  - POLLAKIURIA [None]
  - CONSTIPATION [None]
  - DIABETES MELLITUS [None]
